FAERS Safety Report 9676877 (Version 1)
Quarter: 2013Q4

REPORT INFORMATION
  Report Type: Report from Study
  Country: US (occurrence: US)
  Receive Date: 20131107
  Receipt Date: 20131107
  Transmission Date: 20140711
  Serious: Yes (Death)
  Sender: FDA-Public Use
  Company Number: US-ROCHE-1300667

PATIENT
  Age: 65 Year
  Sex: Female

DRUGS (4)
  1. AVASTIN [Suspect]
     Indication: CERVIX CARCINOMA
     Dosage: 15MG/KL EVERY THREE WEEKS
     Route: 065
  2. AVASTIN [Suspect]
     Indication: METASTASES TO LUNG
  3. TAXOL [Concomitant]
     Route: 065
  4. CARBOPLATIN [Concomitant]
     Route: 065

REACTIONS (1)
  - Death [Fatal]
